FAERS Safety Report 10188577 (Version 2)
Quarter: 2015Q2

REPORT INFORMATION
  Report Type: Spontaneous
  Country: US (occurrence: US)
  Receive Date: 20140522
  Receipt Date: 20150604
  Transmission Date: 20150821
  Serious: No
  Sender: FDA-Public Use
  Company Number: US-SA-2014SA015208

PATIENT
  Age: 71 Year
  Sex: Female

DRUGS (16)
  1. SOLOSTAR [Suspect]
     Active Substance: DEVICE
     Indication: TYPE 2 DIABETES MELLITUS
  2. SOLOSTAR [Suspect]
     Active Substance: DEVICE
     Indication: TYPE 2 DIABETES MELLITUS
     Dosage: PRODUCT STARTED THREE YEARS AGO.
     Dates: start: 2007
  3. SOLOSTAR [Suspect]
     Active Substance: DEVICE
     Indication: TYPE 2 DIABETES MELLITUS
     Dosage: PRODUCT STARTED THREE YEARS AGO.
     Dates: start: 2007
  4. SOLOSTAR [Suspect]
     Active Substance: DEVICE
     Indication: TYPE 2 DIABETES MELLITUS
     Dosage: PRODUCT STARTED THREE YEARS AGO.
     Dates: start: 2007
  5. SOLOSTAR [Suspect]
     Active Substance: DEVICE
     Indication: TYPE 2 DIABETES MELLITUS
  6. LANTUS SOLOSTAR [Suspect]
     Active Substance: INSULIN GLARGINE
     Indication: TYPE 2 DIABETES MELLITUS
     Dosage: PRODUCT STARTED THREE YEARS AGO. DOSE:50 UNIT(S)
     Route: 058
     Dates: start: 2007
  7. LANTUS SOLOSTAR [Suspect]
     Active Substance: INSULIN GLARGINE
     Indication: TYPE 2 DIABETES MELLITUS
     Dosage: 40 UNITS AM AND 40 UNITS PM DOSE:40 UNIT(S)
     Route: 058
  8. SOLOSTAR [Suspect]
     Active Substance: DEVICE
     Indication: TYPE 2 DIABETES MELLITUS
  9. LANTUS SOLOSTAR [Suspect]
     Active Substance: INSULIN GLARGINE
     Indication: TYPE 2 DIABETES MELLITUS
     Dosage: PRODUCT STARTED THREE YEARS AGO. DOSE:50 UNIT(S)
     Route: 058
     Dates: start: 2007
  10. LANTUS SOLOSTAR [Suspect]
     Active Substance: INSULIN GLARGINE
     Indication: TYPE 2 DIABETES MELLITUS
     Dosage: 40 UNITS AM AND 40 UNITS PM DOSE:40 UNIT(S)
     Route: 058
  11. LANTUS SOLOSTAR [Suspect]
     Active Substance: INSULIN GLARGINE
     Indication: TYPE 2 DIABETES MELLITUS
     Dosage: PRODUCT STARTED THREE YEARS AGO. DOSE:50 UNIT(S)
     Route: 058
     Dates: start: 2007
  12. LANTUS SOLOSTAR [Suspect]
     Active Substance: INSULIN GLARGINE
     Indication: TYPE 2 DIABETES MELLITUS
     Dosage: 40 UNITS AM AND 40 UNITS PM DOSE:40 UNIT(S)
     Route: 058
  13. LANTUS SOLOSTAR [Suspect]
     Active Substance: INSULIN GLARGINE
     Indication: TYPE 2 DIABETES MELLITUS
     Dosage: 40 UNITS AM AND 40 UNITS PM DOSE:40 UNIT(S)
     Route: 058
  14. SOLOSTAR [Suspect]
     Active Substance: DEVICE
     Indication: TYPE 2 DIABETES MELLITUS
     Dosage: PRODUCT STARTED THREE YEARS AGO.
     Dates: start: 2007
  15. SOLOSTAR [Suspect]
     Active Substance: DEVICE
     Indication: TYPE 2 DIABETES MELLITUS
  16. LANTUS SOLOSTAR [Suspect]
     Active Substance: INSULIN GLARGINE
     Indication: TYPE 2 DIABETES MELLITUS
     Dosage: PRODUCT STARTED THREE YEARS AGO. DOSE:50 UNIT(S)
     Route: 058
     Dates: start: 2007

REACTIONS (5)
  - Nasopharyngitis [Unknown]
  - Injection site pain [Unknown]
  - Off label use [Unknown]
  - Injection site reaction [Unknown]
  - Injection site induration [Unknown]
